FAERS Safety Report 20896275 (Version 1)
Quarter: 2022Q2

REPORT INFORMATION
  Report Type: Spontaneous
  Country: US (occurrence: None)
  Receive Date: 20220531
  Receipt Date: 20220531
  Transmission Date: 20220721
  Serious: No
  Sender: FDA-Public Use
  Company Number: None

PATIENT
  Age: 24 Year
  Sex: Male
  Weight: 75.75 kg

DRUGS (1)
  1. HUMIRA [Suspect]
     Active Substance: ADALIMUMAB
     Indication: Hidradenitis
     Dosage: INJECT 40MG  SUBCUTANEOUSLY ONCE WEEKLY  AS DIRECTED
     Route: 058
     Dates: start: 202106

REACTIONS (2)
  - Therapy interrupted [None]
  - COVID-19 [None]
